FAERS Safety Report 9897027 (Version 1)
Quarter: 2014Q1

REPORT INFORMATION
  Report Type: Spontaneous
  Country: US (occurrence: US)
  Receive Date: 20140214
  Receipt Date: 20140214
  Transmission Date: 20141002
  Serious: No
  Sender: FDA-Public Use
  Company Number: US-BIOGENIDEC-2014BI013758

PATIENT
  Sex: Female

DRUGS (1)
  1. TYSABRI [Suspect]
     Indication: MULTIPLE SCLEROSIS
     Route: 042
     Dates: start: 20130716

REACTIONS (6)
  - Sensitivity to weather change [Unknown]
  - Mood swings [Unknown]
  - Visual impairment [Unknown]
  - Menstrual disorder [Unknown]
  - Fatigue [Unknown]
  - Asthenia [Unknown]
